FAERS Safety Report 18317752 (Version 1)
Quarter: 2020Q3

REPORT INFORMATION
  Report Type: Spontaneous
  Country: US (occurrence: US)
  Receive Date: 20200928
  Receipt Date: 20200928
  Transmission Date: 20201103
  Serious: No
  Sender: FDA-Public Use
  Company Number: US-ALLERGAN-2020563US

PATIENT
  Age: 79 Year
  Sex: Male
  Weight: 73 kg

DRUGS (3)
  1. LEXAPRO [Suspect]
     Active Substance: ESCITALOPRAM OXALATE
     Indication: ANXIETY
     Dosage: UNK
     Dates: start: 202005, end: 202005
  2. TRAZODONE [Concomitant]
     Active Substance: TRAZODONE HYDROCHLORIDE
     Indication: SLEEP DISORDER
  3. CREATINE [Suspect]
     Active Substance: CREATINE
     Indication: SLEEP DISORDER
     Route: 065

REACTIONS (5)
  - Anxiety [Not Recovered/Not Resolved]
  - Delusion [Not Recovered/Not Resolved]
  - Sleep disorder [Unknown]
  - Diarrhoea [Not Recovered/Not Resolved]
  - Nocturia [Recovering/Resolving]

NARRATIVE: CASE EVENT DATE: 202005
